FAERS Safety Report 22325539 (Version 1)
Quarter: 2023Q2

REPORT INFORMATION
  Report Type: Spontaneous
  Country: US (occurrence: US)
  Receive Date: 20230516
  Receipt Date: 20230516
  Transmission Date: 20230721
  Serious: Yes (Hospitalization)
  Sender: FDA-Public Use
  Company Number: US-AMGEN-USASP2023082835

PATIENT

DRUGS (3)
  1. PROLIA [Suspect]
     Active Substance: DENOSUMAB
     Indication: Product used for unknown indication
     Dosage: UNK
     Route: 065
  2. LETROZOLE [Concomitant]
     Active Substance: LETROZOLE
     Dosage: UNK
  3. RIBOCICLIB [Concomitant]
     Active Substance: RIBOCICLIB
     Dosage: UNK

REACTIONS (4)
  - Productive cough [Unknown]
  - Inflammatory marker increased [Recovered/Resolved]
  - Body temperature increased [Unknown]
  - Infection [Unknown]
